FAERS Safety Report 4837143-4 (Version None)
Quarter: 2005Q4

REPORT INFORMATION
  Report Type: 
  Country: None (occurrence: None)
  Receive Date: 20051122
  Receipt Date: 20051114
  Transmission Date: 20060501
  Serious: Yes (Hospitalization, Other)
  Sender: FDA-Public Use
  Company Number: DEWYE136514NOV05

PATIENT
  Age: 75 Year
  Sex: Female

DRUGS (11)
  1. VENLAFAXINE HCL [Suspect]
     Indication: DEPRESSION
     Dosage: SEE IMAGE
     Route: 048
     Dates: start: 20050510, end: 20050510
  2. VENLAFAXINE HCL [Suspect]
     Indication: DEPRESSION
     Dosage: SEE IMAGE
     Route: 048
     Dates: start: 20050511, end: 20050531
  3. DYTIDE H (HYDROCHLOROTHIAZIDE/TRIAMTERENE, , 0) [Suspect]
  4. PANTOZOL (PANTOPRAZOLE, TABLET, DELAYED RELEASE, 0) [Suspect]
     Dosage: 40 MG ORAL
     Route: 048
     Dates: start: 20050310
  5. PLAVIX [Suspect]
     Dosage: 75 MG ORAL
     Route: 048
  6. SORTIS (ATORVASTATIN CALCIUM, , 0) [Suspect]
     Dosage: 10 MG ORAL
     Route: 048
  7. ENALAPRIL MALEATE [Suspect]
     Dosage: 15 MG ORAL
     Route: 048
  8. LORAZEPAM [Concomitant]
  9. ZOLPIDEM TARTRATE [Concomitant]
  10. SOLIAN (AMISULPRIDE) [Concomitant]
  11. LEVOTHYROXINE SODIUM [Concomitant]

REACTIONS (4)
  - BLOOD POTASSIUM DECREASED [None]
  - DRUG INTERACTION [None]
  - HYPONATRAEMIA [None]
  - POLYDIPSIA PSYCHOGENIC [None]
